FAERS Safety Report 24926977 (Version 2)
Quarter: 2025Q2

REPORT INFORMATION
  Report Type: Spontaneous
  Country: FR (occurrence: FR)
  Receive Date: 20250205
  Receipt Date: 20250418
  Transmission Date: 20250716
  Serious: Yes (Other)
  Sender: ALEXION PHARMACEUTICALS
  Company Number: FR-ASTRAZENECA-202501EEA027541FR

PATIENT
  Age: 80 Year

DRUGS (1)
  1. ULTOMIRIS [Suspect]
     Active Substance: RAVULIZUMAB-CWVZ
     Route: 065

REACTIONS (2)
  - Loss of consciousness [Recovered/Resolved]
  - Hypotension [Recovered/Resolved]
